FAERS Safety Report 7625795-5 (Version None)
Quarter: 2011Q3

REPORT INFORMATION
  Report Type: 
  Country: None (occurrence: None)
  Receive Date: 20110721
  Receipt Date: 20110719
  Transmission Date: 20111222
  Serious: Yes (Hospitalization)
  Sender: FDA-Public Use
  Company Number: PHHY2011GR27100

PATIENT
  Sex: Female

DRUGS (4)
  1. LETROZOLE [Concomitant]
     Dosage: 2.5 MG/DAY
     Route: 048
  2. METHOTREXATE [Suspect]
     Dosage: 12 MG, BIW
     Route: 037
  3. METHOTREXATE [Suspect]
     Dosage: 12 MG, QW
     Route: 037
  4. ANASTROZOLE [Concomitant]

REACTIONS (9)
  - PERFORMANCE STATUS DECREASED [None]
  - ANAEMIA [None]
  - PYREXIA [None]
  - CONFUSIONAL STATE [None]
  - MENTAL IMPAIRMENT [None]
  - BEDRIDDEN [None]
  - EATING DISORDER SYMPTOM [None]
  - LOSS OF CONSCIOUSNESS [None]
  - SPEECH DISORDER [None]
